FAERS Safety Report 8196699-7 (Version None)
Quarter: 2012Q1

REPORT INFORMATION
  Report Type: 
  Country: None (occurrence: None)
  Receive Date: 20120307
  Receipt Date: 20120227
  Transmission Date: 20120608
  Serious: Yes (Other)
  Sender: FDA-Public Use
  Company Number: MPS1-1000628

PATIENT
  Age: 22 Month
  Sex: Female
  Weight: 11 kg

DRUGS (1)
  1. ALDURAZYME [Suspect]
     Indication: MUCOPOLYSACCHARIDOSIS I
     Dosage: INTRAVENOUS
     Route: 042
     Dates: start: 20111220

REACTIONS (4)
  - BLOOD PRESSURE DECREASED [None]
  - VOMITING [None]
  - PALMAR ERYTHEMA [None]
  - BLOOD IMMUNOGLOBULIN G INCREASED [None]
